FAERS Safety Report 9192442 (Version 1)
Quarter: 2013Q1

REPORT INFORMATION
  Report Type: Spontaneous
  Country: US (occurrence: US)
  Receive Date: 20130327
  Receipt Date: 20130327
  Transmission Date: 20140127
  Serious: No
  Sender: FDA-Public Use
  Company Number: US-BAYER-2013-034471

PATIENT
  Age: 77 Year
  Sex: Female
  Weight: 68.03 kg

DRUGS (11)
  1. BETASERON [Suspect]
     Indication: RELAPSING-REMITTING MULTIPLE SCLEROSIS
     Dosage: 0.3 MG, QOD
     Route: 058
     Dates: start: 2001
  2. MAVIK [Concomitant]
  3. METFORMIN [Concomitant]
  4. GABAPENTIN [Concomitant]
  5. GLIPIZIDE [Concomitant]
  6. LEVOTHYROXIN [Concomitant]
  7. METOPROLOL [Concomitant]
  8. CRESTOR [Concomitant]
  9. ADVIL [Concomitant]
  10. BABY ASPIRIN [Concomitant]
  11. HYDROCHLOROTHIAZIDE W/TRIAMTERENE [Concomitant]
     Dosage: 50-75 MG

REACTIONS (2)
  - Gait disturbance [Unknown]
  - Liver disorder [Unknown]
